FAERS Safety Report 13783240 (Version 1)
Quarter: 2017Q3

REPORT INFORMATION
  Report Type: Spontaneous
  Country: GB (occurrence: GB)
  Receive Date: 20170724
  Receipt Date: 20170724
  Transmission Date: 20171127
  Serious: Yes (Death, Other)
  Sender: FDA-Public Use
  Company Number: GB-PFIZER INC-385536

PATIENT
  Age: 74 Year
  Sex: Male
  Weight: 79 kg

DRUGS (2)
  1. PREDNISOLONE. [Concomitant]
     Active Substance: PREDNISOLONE
     Dosage: UNK
     Dates: start: 20050601
  2. METHOTREXATE SODIUM. [Suspect]
     Active Substance: METHOTREXATE SODIUM
     Indication: MYASTHENIA GRAVIS
     Dosage: 15 MG, FREQ: 1 WEEK
     Route: 048
     Dates: start: 20051201, end: 20090101

REACTIONS (2)
  - Acute myeloid leukaemia [Fatal]
  - Neutropenia [Unknown]

NARRATIVE: CASE EVENT DATE: 20090105
